FAERS Safety Report 10873889 (Version 1)
Quarter: 2015Q1

REPORT INFORMATION
  Report Type: Spontaneous
  Country: US (occurrence: None)
  Receive Date: 20150224
  Receipt Date: 20150224
  Transmission Date: 20150721
  Serious: Yes (Hospitalization, Other)
  Sender: FDA-Public Use
  Company Number: US-ZYDUS-006747

PATIENT
  Age: 1 Year
  Sex: Female

DRUGS (1)
  1. LAMOTRIGINE. [Suspect]
     Active Substance: LAMOTRIGINE
     Route: 048

REACTIONS (7)
  - Accidental exposure to product [None]
  - Hyperhidrosis [None]
  - Clonus [None]
  - Serotonin syndrome [None]
  - Toxicity to various agents [None]
  - Agitation [None]
  - Crying [None]
